FAERS Safety Report 6172207-7 (Version None)
Quarter: 2009Q2

REPORT INFORMATION
  Report Type: 
  Country: None (occurrence: None)
  Receive Date: 20090429
  Receipt Date: 20090421
  Transmission Date: 20091009
  Serious: Yes (Death, Other)
  Sender: FDA-Public Use
  Company Number: DE-CELGENEUS-062-21880-09042165

PATIENT

DRUGS (5)
  1. REVLIMID [Suspect]
     Indication: AMYLOIDOSIS
     Dosage: 15MG/15MG
     Route: 048
  2. DEXAMETHASONE 4MG TAB [Suspect]
     Indication: AMYLOIDOSIS
     Route: 065
  3. ASPIRIN [Concomitant]
     Indication: THROMBOSIS PROPHYLAXIS
     Route: 065
  4. LOW-WEIGHT MOLECULAR HEPARINE [Concomitant]
     Indication: THROMBOSIS PROPHYLAXIS
     Route: 065
  5. CIPROFLOXACIN HCL [Concomitant]
     Indication: INFECTION PROPHYLAXIS
     Route: 065

REACTIONS (6)
  - DEATH [None]
  - DEEP VEIN THROMBOSIS [None]
  - FATIGUE [None]
  - INFECTION [None]
  - RASH [None]
  - RENAL IMPAIRMENT [None]
